FAERS Safety Report 9837383 (Version 2)
Quarter: 2014Q1

REPORT INFORMATION
  Report Type: Spontaneous
  Country: US (occurrence: US)
  Receive Date: 20140123
  Receipt Date: 20140313
  Transmission Date: 20141002
  Serious: Yes (Other)
  Sender: FDA-Public Use
  Company Number: US-PFIZER INC-2014021016

PATIENT
  Age: 60 Year
  Sex: Male
  Weight: 95.2 kg

DRUGS (2)
  1. NEURONTIN [Suspect]
     Indication: ARTERIOSCLEROSIS
     Dosage: 600 MG, 3X/DAY
     Dates: start: 2011
  2. NEURONTIN [Suspect]
     Indication: NEURALGIA

REACTIONS (2)
  - Myocardial infarction [Unknown]
  - Drug ineffective [Unknown]
